FAERS Safety Report 5983413-6 (Version None)
Quarter: 2008Q4

REPORT INFORMATION
  Report Type: 
  Country: None (occurrence: None)
  Receive Date: 20081208
  Receipt Date: 20081009
  Transmission Date: 20090506
  Serious: No
  Sender: FDA-Public Use
  Company Number: US-BAYER-200814699BCC

PATIENT

DRUGS (1)
  1. ALEVE-D SINUS + COLD [Suspect]
     Indication: DRUG USE FOR UNKNOWN INDICATION
     Dosage: TOTAL DAILY DOSE: 2 DF  UNIT DOSE: 1 DF
     Dates: start: 20081009

REACTIONS (1)
  - NO ADVERSE EVENT [None]
